FAERS Safety Report 21482786 (Version 1)
Quarter: 2022Q4

REPORT INFORMATION
  Report Type: Spontaneous
  Country: US (occurrence: US)
  Receive Date: 20221020
  Receipt Date: 20221020
  Transmission Date: 20230112
  Serious: No
  Sender: FDA-Public Use
  Company Number: US-ALLERGAN-2134486US

PATIENT
  Sex: Male

DRUGS (1)
  1. LINZESS [Suspect]
     Active Substance: LINACLOTIDE
     Indication: Constipation
     Dosage: 72 ?G, SINGLE
     Route: 048
     Dates: start: 2016, end: 2016

REACTIONS (5)
  - Constipation [Not Recovered/Not Resolved]
  - Rectal discharge [Recovered/Resolved]
  - Contraindicated product prescribed [Unknown]
  - Contraindicated product administered [Unknown]
  - Drug ineffective [Unknown]

NARRATIVE: CASE EVENT DATE: 20160101
